FAERS Safety Report 11971806 (Version 3)
Quarter: 2016Q2

REPORT INFORMATION
  Report Type: Spontaneous
  Country: US (occurrence: US)
  Receive Date: 20160128
  Receipt Date: 20160601
  Transmission Date: 20160815
  Serious: Yes (Other)
  Sender: FDA-Public Use
  Company Number: US-PFIZER INC-2016045588

PATIENT
  Age: 49 Year
  Sex: Male

DRUGS (2)
  1. VIAGRA [Suspect]
     Active Substance: SILDENAFIL CITRATE
     Dosage: 100 MG, UNK
     Route: 048
     Dates: start: 20110829
  2. VIAGRA [Suspect]
     Active Substance: SILDENAFIL CITRATE
     Indication: ERECTILE DYSFUNCTION
     Dosage: UNK, REGULARLY
     Route: 048
     Dates: start: 200710, end: 201404

REACTIONS (1)
  - Superficial spreading melanoma stage unspecified [Unknown]

NARRATIVE: CASE EVENT DATE: 20140214
